FAERS Safety Report 8304423-X (Version None)
Quarter: 2012Q2

REPORT INFORMATION
  Report Type: 
  Country: None (occurrence: None)
  Receive Date: 20120423
  Receipt Date: 20120418
  Transmission Date: 20120825
  Serious: Yes (Life-Threatening)
  Sender: FDA-Public Use
  Company Number: IT-ASTRAZENECA-2012SE25129

PATIENT
  Age: 71 Year
  Sex: Male

DRUGS (4)
  1. PLAUNAZIDE (20MG OLMESARTAN MEDOXOMIL+12.5MG HYDROCHLOROTHIAZIDE) [Concomitant]
     Dosage: 12.5MG/20MG
  2. DIPRIVAN [Suspect]
     Indication: ANAESTHESIA
     Route: 042
     Dates: start: 20120321, end: 20120321
  3. GLYCINE HCL [Suspect]
     Indication: URETHRAL OPERATION
     Dosage: UNKNOWN DOSE ONCE/SINGLE ADMINISTRATION
     Route: 066
     Dates: start: 20120321, end: 20120321
  4. ASPIRIN [Concomitant]

REACTIONS (1)
  - ANAPHYLACTIC SHOCK [None]
